FAERS Safety Report 9292337 (Version 2)
Quarter: 2013Q2

REPORT INFORMATION
  Report Type: Report from Study
  Country: CA (occurrence: CA)
  Receive Date: 20130516
  Receipt Date: 20130523
  Transmission Date: 20140414
  Serious: Yes (Death, Hospitalization)
  Sender: FDA-Public Use
  Company Number: PHHY2012CA071290

PATIENT
  Age: 73 Year
  Sex: Male

DRUGS (2)
  1. CLOZARIL [Suspect]
     Indication: PSYCHOTIC DISORDER
     Dosage: 75 MG,
     Route: 048
     Dates: start: 20100308
  2. CLOZARIL [Suspect]
     Dosage: UNK
     Route: 048
     Dates: start: 20100406

REACTIONS (3)
  - Death [Fatal]
  - Pneumonia aspiration [Unknown]
  - High density lipoprotein increased [Unknown]
